FAERS Safety Report 7717241-8 (Version None)
Quarter: 2011Q3

REPORT INFORMATION
  Report Type: 
  Country: None (occurrence: None)
  Receive Date: 20110818
  Receipt Date: 20110701
  Transmission Date: 20111222
  Serious: No
  Sender: FDA-Public Use
  Company Number: 1000021807

PATIENT
  Age: 69 Year
  Sex: Male

DRUGS (5)
  1. INSOMNIA MEDICATION NOS (INSOMNIA MEDICINE NOS) (INSOMNIA MEDICATION N [Concomitant]
  2. VIIBRYD [Suspect]
     Indication: DEPRESSION
     Dosage: 10 MG, ORAL
     Route: 048
     Dates: start: 20110601
  3. DIOVAN [Concomitant]
  4. ALLOPURINOL [Concomitant]
  5. VIIBRYD [Suspect]
     Indication: DEPRESSION
     Dosage: 10 MG (10 MG, 1 IN 1 D), ORAL
     Route: 048
     Dates: start: 20110624, end: 20110627

REACTIONS (3)
  - LIBIDO DECREASED [None]
  - BALANCE DISORDER [None]
  - DIZZINESS [None]
